FAERS Safety Report 6680081-5 (Version None)
Quarter: 2010Q2

REPORT INFORMATION
  Report Type: 
  Country: None (occurrence: None)
  Receive Date: 20100409
  Receipt Date: 20100325
  Transmission Date: 20101027
  Serious: Yes (Life-Threatening, Hospitalization, Other)
  Sender: FDA-Public Use
  Company Number: DSA_42885_2010

PATIENT
  Age: 26 Year
  Sex: Male

DRUGS (1)
  1. DILTIAZEM HYDROCHLORIDE [Suspect]
     Indication: SUICIDE ATTEMPT
     Dosage: (1200 MG 1X, NOT THE PRESCRIBED AMOUNT ORAL)
     Route: 048

REACTIONS (5)
  - BLOOD PRESSURE DECREASED [None]
  - COMA SCALE ABNORMAL [None]
  - CONTINUOUS HAEMODIAFILTRATION [None]
  - POISONING [None]
  - SUICIDE ATTEMPT [None]
